FAERS Safety Report 6933444-4 (Version None)
Quarter: 2010Q3

REPORT INFORMATION
  Report Type: 
  Country: None (occurrence: None)
  Receive Date: 20100820
  Receipt Date: 20100810
  Transmission Date: 20110219
  Serious: Yes (Other)
  Sender: FDA-Public Use
  Company Number: IE-PFIZER INC-2010100693

PATIENT
  Age: 55 Year
  Sex: Male

DRUGS (5)
  1. LIPITOR [Suspect]
     Dosage: 80 MG, UNK
  2. LIPITOR [Suspect]
     Dosage: 40 MG, UNK
  3. BISOPROLOL [Concomitant]
     Dosage: UNK
  4. HALOPERIDOL [Concomitant]
     Dosage: UNK
  5. ACETYLSALICYLIC ACID [Concomitant]
     Dosage: UNK

REACTIONS (3)
  - BACK PAIN [None]
  - GASTROINTESTINAL DISORDER [None]
  - MUSCULOSKELETAL CHEST PAIN [None]
